FAERS Safety Report 14392498 (Version 2)
Quarter: 2018Q1

REPORT INFORMATION
  Report Type: Spontaneous
  Country: US (occurrence: US)
  Receive Date: 20180116
  Receipt Date: 20180321
  Transmission Date: 20180509
  Serious: No
  Sender: FDA-Public Use
  Company Number: US-PFIZER INC-2018011327

PATIENT
  Age: 6 Year
  Sex: Male
  Weight: 22.22 kg

DRUGS (3)
  1. FLONASE [Concomitant]
     Active Substance: FLUTICASONE PROPIONATE
     Indication: SINUS DISORDER
     Dosage: UNK 1 SQUIRT IN EACH NOSTRIL
     Route: 045
  2. QUILLICHEW ER [Suspect]
     Active Substance: METHYLPHENIDATE HYDROCHLORIDE
     Indication: ATTENTION DEFICIT/HYPERACTIVITY DISORDER
     Dosage: 20 MG, 1X/DAY [ONCE PER DAY IN THE MORNING]
     Route: 048
  3. SINGULAIR [Concomitant]
     Active Substance: MONTELUKAST SODIUM
     Indication: HYPERSENSITIVITY
     Dosage: 5 MG, DAILY
     Route: 048

REACTIONS (4)
  - Therapeutic response shortened [Unknown]
  - Weight gain poor [Unknown]
  - Aggression [Unknown]
  - Decreased appetite [Not Recovered/Not Resolved]
